FAERS Safety Report 6073272-8 (Version None)
Quarter: 2009Q1

REPORT INFORMATION
  Report Type: 
  Country: None (occurrence: None)
  Receive Date: 20090211
  Receipt Date: 20090129
  Transmission Date: 20090719
  Serious: Yes (Other)
  Sender: FDA-Public Use
  Company Number: PHHO2007MX14960

PATIENT
  Sex: Female

DRUGS (7)
  1. DIOVAN HCT [Suspect]
     Indication: HYPERTENSION
     Dosage: 160/25MG DAILY
     Route: 048
     Dates: start: 20070201
  2. METFORMIN HCL [Concomitant]
     Indication: DIABETES MELLITUS
     Dosage: 1 DF, TID
  3. GLIBENCLAMIDE [Concomitant]
     Dosage: 1 DF, TID
  4. PRAVASTATIN [Concomitant]
     Indication: BLOOD CHOLESTEROL
     Dosage: 2 TABLETS DAILY
  5. ISOSORBIDE DINITRATE [Concomitant]
     Dosage: 1 TABLET, TID
  6. ANAPSIQUE [Concomitant]
     Dosage: 0.5 DF, QD
  7. ASPIRIN [Concomitant]
     Dosage: 1 TABLET, QD
     Route: 048

REACTIONS (7)
  - FALL [None]
  - FRACTURE [None]
  - JOINT SPRAIN [None]
  - PAIN [None]
  - RASH [None]
  - SKIN DEPIGMENTATION [None]
  - SURGERY [None]
